FAERS Safety Report 16125483 (Version 5)
Quarter: 2020Q1

REPORT INFORMATION
  Report Type: Spontaneous
  Country: TR (occurrence: TR)
  Receive Date: 20190327
  Receipt Date: 20200217
  Transmission Date: 20200409
  Serious: Yes (Death, Other)
  Sender: FDA-Public Use
  Company Number: PHHY2019TR069257

PATIENT
  Age: 73 Year
  Sex: Female

DRUGS (2)
  1. EXELON PATCH [Suspect]
     Active Substance: RIVASTIGMINE
     Dosage: 13.3 MG, QD PATCH 15 (CM2)
     Route: 062
  2. EXELON PATCH [Suspect]
     Active Substance: RIVASTIGMINE
     Indication: DEMENTIA ALZHEIMER^S TYPE
     Dosage: 4.6 MG, QD PATCH 5 (CM2)
     Route: 062

REACTIONS (14)
  - Bile duct cancer [Fatal]
  - Blood pressure inadequately controlled [Unknown]
  - Vomiting [Fatal]
  - Erythema [Fatal]
  - Gallbladder cancer [Fatal]
  - Blood pressure abnormal [Unknown]
  - Hepatic cancer [Fatal]
  - Asthenia [Fatal]
  - Decreased appetite [Fatal]
  - Weight decreased [Fatal]
  - Pruritus [Unknown]
  - Abdominal pain [Fatal]
  - Fatigue [Fatal]
  - Urinary retention [Fatal]
